FAERS Safety Report 5726135-9 (Version None)
Quarter: 2008Q2

REPORT INFORMATION
  Report Type: 
  Country: None (occurrence: None)
  Receive Date: 20080502
  Receipt Date: 20080502
  Transmission Date: 20081010
  Serious: Yes (Hospitalization, Disabling)
  Sender: FDA-Public Use
  Company Number: None

PATIENT
  Age: 65 Year
  Sex: Female

DRUGS (1)
  1. HEPARIN [Suspect]

REACTIONS (2)
  - BACTERIA BLOOD IDENTIFIED [None]
  - ESCHERICHIA INFECTION [None]
